FAERS Safety Report 24952556 (Version 1)
Quarter: 2025Q1

REPORT INFORMATION
  Report Type: Spontaneous
  Country: DE (occurrence: DE)
  Receive Date: 20250210
  Receipt Date: 20250210
  Transmission Date: 20250408
  Serious: Yes (Other)
  Sender: SANOFI AVENTIS
  Company Number: DE-SANOFI-02401087

PATIENT
  Age: 92 Year
  Sex: Male

DRUGS (2)
  1. INSULIN GLARGINE [Suspect]
     Active Substance: INSULIN GLARGINE
     Dosage: 18 IU, QD
  2. APIDRA [Suspect]
     Active Substance: INSULIN GLULISINE
     Dosage: 5?9 UNITS, TID

REACTIONS (3)
  - Syncope [Unknown]
  - Blood glucose decreased [Unknown]
  - Wrong technique in product usage process [Unknown]
